FAERS Safety Report 20209389 (Version 2)
Quarter: 2022Q1

REPORT INFORMATION
  Report Type: Report from Study
  Country: US (occurrence: US)
  Receive Date: 20211220
  Receipt Date: 20220120
  Transmission Date: 20220423
  Serious: No
  Sender: FDA-Public Use
  Company Number: US-NOVARTISTESTPH-NVSC2021US291604

PATIENT
  Sex: Female

DRUGS (1)
  1. PIQRAY [Suspect]
     Active Substance: ALPELISIB
     Indication: Product used for unknown indication
     Dosage: UNK
     Route: 048
     Dates: start: 20211129

REACTIONS (11)
  - Illness [Unknown]
  - Chills [Unknown]
  - Pain [Unknown]
  - Hypersensitivity [Unknown]
  - Rash [Unknown]
  - Erythema [Unknown]
  - Skin exfoliation [Unknown]
  - Pyrexia [Unknown]
  - Asthenia [Unknown]
  - Decreased appetite [Unknown]
  - Nausea [Unknown]
